FAERS Safety Report 16095342 (Version 1)
Quarter: 2019Q1

REPORT INFORMATION
  Report Type: Other
  Country: CA (occurrence: CA)
  Receive Date: 20190320
  Receipt Date: 20190320
  Transmission Date: 20190418
  Serious: Yes (Life-Threatening, Other)
  Sender: FDA-Public Use
  Company Number: CA-BECTON DICKINSON-2019BDN00098

PATIENT
  Age: 42 Year
  Sex: Female

DRUGS (1)
  1. CHLORHEXIDINE [Suspect]
     Active Substance: CHLORHEXIDINE
     Indication: INFECTION PROPHYLAXIS
     Dosage: 1 DOSAGE UNITS
     Route: 061

REACTIONS (5)
  - Stridor [Not Recovered/Not Resolved]
  - Oropharyngeal swelling [Not Recovered/Not Resolved]
  - Lip swelling [Not Recovered/Not Resolved]
  - Urticaria [Not Recovered/Not Resolved]
  - Tongue oedema [Not Recovered/Not Resolved]
